FAERS Safety Report 12978405 (Version 1)
Quarter: 2016Q4

REPORT INFORMATION
  Report Type: Spontaneous
  Country: US (occurrence: US)
  Receive Date: 20161127
  Receipt Date: 20161127
  Transmission Date: 20170207
  Serious: Yes (Other)
  Sender: FDA-Public Use
  Company Number: None

PATIENT
  Age: 71 Year
  Sex: Female
  Weight: 96.75 kg

DRUGS (14)
  1. LISINOPRIL. [Concomitant]
     Active Substance: LISINOPRIL
  2. METFORMIN [Concomitant]
     Active Substance: METFORMIN HYDROCHLORIDE
  3. VICTOZA [Concomitant]
     Active Substance: LIRAGLUTIDE
  4. OMEPRAZOLE. [Suspect]
     Active Substance: OMEPRAZOLE
     Indication: GASTROOESOPHAGEAL REFLUX DISEASE
     Dosage: ?          QUANTITY:2 CAPSULE(S);?
     Route: 048
  5. VITAMIN D3 [Concomitant]
     Active Substance: CHOLECALCIFEROL
  6. IRON [Concomitant]
     Active Substance: IRON
  7. TURMERIC [Concomitant]
     Active Substance: TURMERIC
  8. FISH OIL [Concomitant]
     Active Substance: FISH OIL
  9. LANTUS [Concomitant]
     Active Substance: INSULIN GLARGINE
  10. CALCIUM [Concomitant]
     Active Substance: CALCIUM
  11. FIBER [Concomitant]
     Active Substance: PSYLLIUM HUSK
  12. MELOXICAM. [Suspect]
     Active Substance: MELOXICAM
     Indication: ARTHRALGIA
     Dosage: ?          QUANTITY:1 TABLET(S);?
     Route: 048
  13. TYLENOL [Concomitant]
     Active Substance: ACETAMINOPHEN
  14. CINNAMON. [Concomitant]
     Active Substance: CINNAMON

REACTIONS (3)
  - Motion sickness [None]
  - Nausea [None]
  - Vomiting [None]

NARRATIVE: CASE EVENT DATE: 20161019
